FAERS Safety Report 21485831 (Version 1)
Quarter: 2022Q4

REPORT INFORMATION
  Report Type: Spontaneous
  Country: US (occurrence: None)
  Receive Date: 20221019
  Receipt Date: 20221019
  Transmission Date: 20230112
  Serious: No
  Sender: FDA-Public Use
  Company Number: None

PATIENT
  Age: 56 Year
  Sex: Female

DRUGS (1)
  1. TRUXIMA [Suspect]
     Active Substance: RITUXIMAB-ABBS
     Indication: Rheumatoid arthritis
     Dosage: INFUSE 1000MG INTRAVENOUSLY AT DAY 1 AND DAY 15. REPEAT EVERY 6 MONTHS AS DIRECTED?
     Route: 042
     Dates: start: 202209

REACTIONS (1)
  - COVID-19 [None]
